FAERS Safety Report 12800018 (Version 1)
Quarter: 2016Q3

REPORT INFORMATION
  Report Type: Spontaneous
  Country: DE (occurrence: DE)
  Receive Date: 20160930
  Receipt Date: 20160930
  Transmission Date: 20161109
  Serious: Yes (Other)
  Sender: FDA-Public Use
  Company Number: GXKR2016DE004558

PATIENT

DRUGS (10)
  1. SERTRALINE [Suspect]
     Active Substance: SERTRALINE HYDROCHLORIDE
     Indication: DEPRESSION
     Dosage: 75 MG/D (SINCE 2014), INCREASED TO 100 MG/D IN GW13 1/7
     Route: 048
     Dates: start: 20150315, end: 20150727
  2. UNACID [Concomitant]
     Active Substance: AMPICILLIN SODIUM\SULBACTAM SODIUM
     Indication: PYELONEPHRITIS
     Dosage: UNK UKN, UNK
     Route: 065
     Dates: start: 20150721, end: 20150722
  3. VALDOXAN [Suspect]
     Active Substance: AGOMELATINE
     Indication: DEPRESSION
     Dosage: 25 [MG/D ]/ SINCE 2014
     Route: 048
     Dates: start: 20150315, end: 20150727
  4. TAVOR (LORAZEPAM) [Concomitant]
     Active Substance: LORAZEPAM
     Indication: PANIC ATTACK
     Dosage: 0.5 [MG/D ]/ AS NEEDED, 1 - 2 TIMES/WK
     Route: 048
     Dates: start: 20150315, end: 20150727
  5. CEFUROXIME. [Concomitant]
     Active Substance: CEFUROXIME
     Indication: PROPHYLAXIS URINARY TRACT INFECTION
     Dosage: 1.5 [G/D ]/ DURING HOSPITAL STAY PRESCRIBED FOR 6 TO 8 WEEKS
     Route: 042
     Dates: start: 20150722, end: 20150727
  6. FOLIO                              /00349401/ [Concomitant]
     Active Substance: CYANOCOBALAMIN\FOLIC ACID
     Indication: PROPHYLAXIS OF NEURAL TUBE DEFECT
     Dosage: 0.4 [MG/D ]/ -?
     Route: 048
  7. AGYRAX [Concomitant]
     Active Substance: MECLIZINE HYDROCHLORIDE
     Indication: NAUSEA
     Dosage: STARTED AT THE BEGINNING OF MAY 2015
     Route: 048
     Dates: start: 20150501, end: 20150625
  8. PHENA//PROMETHAZINE HYDROCHLORIDE [Concomitant]
     Indication: PANIC ATTACK
     Dosage: 25 [MG/D ]/ -?, SINCE MARCH 2014, AS NEEDED, MAX 3 TIMES/WK
     Route: 048
  9. ORAL CONTRACEPTIVE NOS [Concomitant]
     Active Substance: UNSPECIFIED INGREDIENT
     Indication: ORAL CONTRACEPTION
     Dosage: ^MINIPILLE^
     Route: 048
  10. IBUPROFEN. [Concomitant]
     Active Substance: IBUPROFEN
     Indication: PAIN
     Dosage: AS NEEDED, CIRCA ONCE/WEEK
     Route: 048
     Dates: start: 20150315, end: 20150727

REACTIONS (4)
  - Pyrexia [Recovered/Resolved]
  - Pyelonephritis [Recovered/Resolved]
  - Retroplacental haematoma [Recovered/Resolved]
  - Abortion late [Recovered/Resolved]
